FAERS Safety Report 13601074 (Version 1)
Quarter: 2017Q2

REPORT INFORMATION
  Report Type: Spontaneous
  Country: US (occurrence: US)
  Receive Date: 20170601
  Receipt Date: 20170601
  Transmission Date: 20170830
  Serious: Yes (Hospitalization)
  Sender: FDA-Public Use
  Company Number: US-PFIZER INC-2017230290

PATIENT
  Age: 48 Year
  Sex: Male
  Weight: 92.99 kg

DRUGS (4)
  1. VENLAFAXINE HCL [Suspect]
     Active Substance: VENLAFAXINE HYDROCHLORIDE
     Dosage: 75 MG, 3X/DAY
     Route: 048
  2. TRAZODONE [Concomitant]
     Active Substance: TRAZODONE HYDROCHLORIDE
     Indication: SLEEP DISORDER
     Dosage: 50 MG, 1X/DAY(50MG TABLET AT NIGHT)
     Dates: start: 2012
  3. TRAZODONE [Concomitant]
     Active Substance: TRAZODONE HYDROCHLORIDE
     Indication: ANTIDEPRESSANT THERAPY
  4. VENLAFAXINE HCL [Suspect]
     Active Substance: VENLAFAXINE HYDROCHLORIDE
     Indication: DEPRESSION
     Dosage: 75 MG, 1X/DAY, (TABLET)
     Route: 048
     Dates: start: 2014

REACTIONS (4)
  - Condition aggravated [Not Recovered/Not Resolved]
  - Product quality issue [Not Recovered/Not Resolved]
  - Depression [Not Recovered/Not Resolved]
  - Poor quality drug administered [Not Recovered/Not Resolved]
